FAERS Safety Report 11258083 (Version 2)
Quarter: 2015Q2

REPORT INFORMATION
  Report Type: Spontaneous
  Country: US (occurrence: None)
  Receive Date: 20150617
  Receipt Date: 20150617
  Transmission Date: 20150821
  Serious: No
  Sender: FDA-Public Use
  Company Number: 2014TASUS000555

PATIENT
  Age: 62 Year
  Sex: Male
  Weight: 88.4 kg

DRUGS (2)
  1. HETLIOZ [Suspect]
     Active Substance: TASIMELTEON
     Indication: CIRCADIAN RHYTHM SLEEP DISORDER
     Route: 048
     Dates: start: 20141015
  2. OXYCODONE [Concomitant]
     Active Substance: OXYCODONE

REACTIONS (3)
  - Nightmare [None]
  - Abnormal dreams [None]
  - Drug dose omission [None]

NARRATIVE: CASE EVENT DATE: 2014
